FAERS Safety Report 14119107 (Version 1)
Quarter: 2017Q4

REPORT INFORMATION
  Report Type: Spontaneous
  Country: DE (occurrence: DE)
  Receive Date: 20171024
  Receipt Date: 20171024
  Transmission Date: 20180321
  Serious: Yes (Hospitalization)
  Sender: FDA-Public Use
  Company Number: DE-AUROBINDO-AUR-APL-2017-42224

PATIENT
  Age: 66 Year
  Sex: Male

DRUGS (2)
  1. CEFUROXIME. [Suspect]
     Active Substance: CEFUROXIME
     Indication: INFECTION
     Route: 065
  2. OCTENISEPT                         /00972101/ [Concomitant]
     Indication: INFECTION
     Route: 065

REACTIONS (2)
  - Drug resistance [Recovered/Resolved]
  - Corynebacterium infection [Recovered/Resolved]
